FAERS Safety Report 4548911-0 (Version None)
Quarter: 2004Q4

REPORT INFORMATION
  Report Type: 
  Country: None (occurrence: None)
  Receive Date: 20041227
  Receipt Date: 20041004
  Transmission Date: 20050328
  Serious: No
  Sender: FDA-Public Use
  Company Number: 04P-163-0276305-00

PATIENT
  Age: 49 Year
  Sex: Male

DRUGS (7)
  1. HUMIRA [Suspect]
     Indication: RHEUMATOID ARTHRITIS
     Dosage: 40 MG, 1 IN 2 WK, SUBCUTANEOUS
     Route: 058
     Dates: start: 20040930
  2. METHOTREXATE [Concomitant]
  3. FOLIC ACID [Concomitant]
  4. PREDNISONE [Concomitant]
  5. ESOMEPRAZOLE [Concomitant]
  6. LEXAPRO [Concomitant]
  7. VICODIN [Concomitant]

REACTIONS (3)
  - INJECTION SITE ERYTHEMA [None]
  - MYALGIA [None]
  - PHOTOSENSITIVITY REACTION [None]
